FAERS Safety Report 4480057-2 (Version None)
Quarter: 2004Q4

REPORT INFORMATION
  Report Type: 
  Country: None (occurrence: None)
  Receive Date: 20041018
  Receipt Date: 20040923
  Transmission Date: 20050328
  Serious: Yes (Hospitalization)
  Sender: FDA-Public Use
  Company Number: USA040978864

PATIENT
  Age: 80 Year
  Sex: Female
  Weight: 52 kg

DRUGS (1)
  1. ALIMTA [Suspect]
     Indication: MESOTHELIOMA

REACTIONS (2)
  - DYSPHASIA [None]
  - FEELING ABNORMAL [None]
